FAERS Safety Report 7180600-9 (Version None)
Quarter: 2010Q4

REPORT INFORMATION
  Report Type: 
  Country: None (occurrence: None)
  Receive Date: 20101221
  Receipt Date: 20101215
  Transmission Date: 20110411
  Serious: Yes (Other)
  Sender: FDA-Public Use
  Company Number: BR-PFIZER INC-2010137244

PATIENT
  Age: 42 Year
  Sex: Male
  Weight: 82 kg

DRUGS (2)
  1. CHAMPIX [Suspect]
     Indication: TOBACCO USER
     Dosage: UNK
     Route: 048
     Dates: start: 20100915, end: 20100101
  2. NEBIVOLOL HYDROCHLORIDE [Concomitant]
     Indication: HYPERTENSION
     Dosage: 1 MG, 1X/DAY
     Dates: start: 20101001

REACTIONS (1)
  - HYPERTENSION [None]
